FAERS Safety Report 6879506-1 (Version None)
Quarter: 2010Q3

REPORT INFORMATION
  Report Type: 
  Country: None (occurrence: None)
  Receive Date: 20100728
  Receipt Date: 20100713
  Transmission Date: 20110219
  Serious: Yes (Hospitalization, Other)
  Sender: FDA-Public Use
  Company Number: PHHY2008CA00568

PATIENT
  Sex: Female

DRUGS (8)
  1. CLOZARIL [Suspect]
     Indication: AGITATION
     Dosage: 75 MG
     Route: 048
     Dates: start: 20061001
  2. CLOZARIL [Suspect]
     Dosage: 200 MG
     Route: 048
  3. CLOZARIL [Suspect]
     Dosage: 250 MG, QHS
     Route: 048
     Dates: start: 20061016, end: 20080121
  4. CLOZARIL [Suspect]
     Dosage: 200 MG, QHS
     Route: 048
     Dates: start: 20080121, end: 20080128
  5. PANTOPRAZOLE [Concomitant]
  6. PREVACID [Concomitant]
     Dosage: UNK
  7. LAMICTAL [Concomitant]
     Dosage: 50 MG, BID
     Dates: start: 20071220, end: 20080108
  8. EPIVAL [Concomitant]

REACTIONS (9)
  - AGITATION [None]
  - BLISTER [None]
  - CONVULSION [None]
  - ERYTHEMA [None]
  - PETIT MAL EPILEPSY [None]
  - RASH [None]
  - SEDATION [None]
  - SKIN LESION [None]
  - WOUND [None]
